FAERS Safety Report 8844612 (Version 2)
Quarter: 2013Q2

REPORT INFORMATION
  Report Type: Spontaneous
  Country: US (occurrence: None)
  Receive Date: 20120426
  Receipt Date: 20120703
  Transmission Date: 20140414
  Serious: No
  Sender: FDA-Public Use
  Company Number: PHEH2011US012137

PATIENT
  Age: 55 Year
  Sex: Female

DRUGS (1)
  1. GILENYA [Suspect]
     Route: 048
     Dates: start: 201111

REACTIONS (6)
  - Faeces discoloured [None]
  - Abnormal faeces [None]
  - Feeling abnormal [None]
  - Fatigue [None]
  - Diarrhoea [None]
  - Defaecation urgency [None]
